APPROVED DRUG PRODUCT: ALBUTEROL SULFATE
Active Ingredient: ALBUTEROL SULFATE
Strength: EQ 0.083% BASE
Dosage Form/Route: SOLUTION;INHALATION
Application: A075358 | Product #001
Applicant: BAUSCH HEALTH US LLC
Approved: Mar 29, 2000 | RLD: No | RS: No | Type: DISCN